FAERS Safety Report 11334324 (Version 2)
Quarter: 2015Q3

REPORT INFORMATION
  Report Type: Report from Study
  Country: DE (occurrence: DE)
  Receive Date: 20150803
  Receipt Date: 20150821
  Transmission Date: 20151125
  Serious: No
  Sender: FDA-Public Use
  Company Number: DE-ABBVIE-15K-062-1434884-00

PATIENT
  Age: 54 Year
  Sex: Female
  Weight: 73 kg

DRUGS (1)
  1. HUMIRA [Suspect]
     Active Substance: ADALIMUMAB
     Indication: RHEUMATOID ARTHRITIS
     Route: 058
     Dates: start: 20060912, end: 201503

REACTIONS (1)
  - Aortic dilatation [Not Recovered/Not Resolved]

NARRATIVE: CASE EVENT DATE: 20150113
